FAERS Safety Report 9821157 (Version 1)
Quarter: 2014Q1

REPORT INFORMATION
  Report Type: Spontaneous
  Country: US (occurrence: US)
  Receive Date: 20140116
  Receipt Date: 20140116
  Transmission Date: 20141002
  Serious: Yes (Hospitalization, Other)
  Sender: FDA-Public Use
  Company Number: US-TEVA-455438USA

PATIENT
  Sex: 0

DRUGS (6)
  1. GABITRIL [Suspect]
     Indication: PRODUCT USED FOR UNKNOWN INDICATION
  2. TEGRETOL [Concomitant]
  3. TOPAMAX [Concomitant]
  4. CLONAZEPAM [Concomitant]
  5. ONFI [Concomitant]
  6. PHENOBARBITAL [Concomitant]

REACTIONS (4)
  - Convulsion [Unknown]
  - Frustration [Unknown]
  - Anger [Unknown]
  - Drug hypersensitivity [Unknown]
